FAERS Safety Report 5110946-7 (Version None)
Quarter: 2006Q3

REPORT INFORMATION
  Report Type: 
  Country: None (occurrence: None)
  Receive Date: 20060920
  Receipt Date: 20060920
  Transmission Date: 20061208
  Serious: Yes (Life-Threatening, Hospitalization)
  Sender: FDA-Public Use
  Company Number: None

PATIENT
  Sex: Male
  Weight: 60.23 kg

DRUGS (1)
  1. MIRTAZAPINE [Suspect]
     Indication: DEPRESSION
     Dosage: 30 MG ONCE DAILY PO
     Route: 048
     Dates: start: 20060804, end: 20060818

REACTIONS (5)
  - ERYTHEMA [None]
  - HISTONE ANTIBODY POSITIVE [None]
  - LEUKOCYTOCLASTIC VASCULITIS [None]
  - SKIN EXFOLIATION [None]
  - SKIN ODOUR ABNORMAL [None]
